FAERS Safety Report 5348039-6 (Version None)
Quarter: 2007Q2

REPORT INFORMATION
  Report Type: 
  Country: None (occurrence: None)
  Receive Date: 20070606
  Receipt Date: 20070525
  Transmission Date: 20071010
  Serious: Yes (Congenital Anomaly)
  Sender: FDA-Public Use
  Company Number: US-GILEAD-2007-0012006

PATIENT
  Sex: Male
  Weight: 2.245 kg

DRUGS (3)
  1. TRUVADA [Suspect]
  2. STAVUDINE [Suspect]
  3. LOPINAVIR/RITONAVIR [Suspect]

REACTIONS (1)
  - CONGENITAL ACROCHORDON [None]
